FAERS Safety Report 25739508 (Version 1)
Quarter: 2025Q3

REPORT INFORMATION
  Report Type: Report from Study
  Country: US (occurrence: US)
  Receive Date: 20250829
  Receipt Date: 20250829
  Transmission Date: 20251021
  Serious: No
  Sender: SUNOVION
  Company Number: US-SUMITOMO PHARMA SWITZERLAND GMBH-2025SPA010831

PATIENT
  Age: 80 Year
  Sex: Male

DRUGS (13)
  1. ORGOVYX [Suspect]
     Active Substance: RELUGOLIX
     Indication: Prostate cancer
     Route: 048
  2. MINERALS\VITAMINS [Concomitant]
     Active Substance: MINERALS\VITAMINS
  3. ASPIRIN [Concomitant]
     Active Substance: ASPIRIN
  4. LEVOTHYROXINE SODIUM [Concomitant]
     Active Substance: LEVOTHYROXINE SODIUM
  5. LISINOPRIL [Concomitant]
     Active Substance: LISINOPRIL
  6. MAGNESIUM GLYCINATE [Concomitant]
     Active Substance: MAGNESIUM GLYCINATE
  7. MIRTAZAPINE [Concomitant]
     Active Substance: MIRTAZAPINE
  8. MINERALS\VITAMINS [Concomitant]
     Active Substance: MINERALS\VITAMINS
  9. VITAMIN B12 [Concomitant]
     Active Substance: CYANOCOBALAMIN
  10. ROSUVASTATIN CALCIUM [Concomitant]
     Active Substance: ROSUVASTATIN CALCIUM
  11. SILDENAFIL CITRATE [Concomitant]
     Active Substance: SILDENAFIL CITRATE
  12. TYLENOL [Concomitant]
     Active Substance: ACETAMINOPHEN
  13. Vitamin d3 + k2 [Concomitant]

REACTIONS (1)
  - Fatigue [Unknown]
